FAERS Safety Report 7036120-5 (Version None)
Quarter: 2010Q4

REPORT INFORMATION
  Report Type: 
  Country: None (occurrence: None)
  Receive Date: 20101008
  Receipt Date: 20091214
  Transmission Date: 20110411
  Serious: No
  Sender: FDA-Public Use
  Company Number: US-BRISTOL-MYERS SQUIBB COMPANY-14893614

PATIENT
  Age: 66 Year
  Sex: Female
  Weight: 86 kg

DRUGS (1)
  1. AVAPRO [Suspect]
     Dosage: STARTED ABOUT 2-3 MONTHS AGO
     Route: 048
     Dates: start: 20090101

REACTIONS (1)
  - DYSGEUSIA [None]
